FAERS Safety Report 14069993 (Version 2)
Quarter: 2017Q4

REPORT INFORMATION
  Report Type: Spontaneous
  Country: US (occurrence: US)
  Receive Date: 20171010
  Receipt Date: 20171109
  Transmission Date: 20180321
  Serious: Yes (Hospitalization)
  Sender: FDA-Public Use
  Company Number: US-BRACCO-2017US04504

PATIENT
  Age: 67 Year
  Sex: Male

DRUGS (8)
  1. VERSED [Concomitant]
     Active Substance: MIDAZOLAM HYDROCHLORIDE
  2. PRILOSEC [Concomitant]
     Active Substance: OMEPRAZOLE MAGNESIUM
  3. ISOVUE 300 [Suspect]
     Active Substance: IOPAMIDOL
     Indication: ANGIOGRAM CEREBRAL
     Dosage: UNK UNK, SINGLE
     Route: 013
     Dates: start: 20170914, end: 20170914
  4. FENTANYL. [Concomitant]
     Active Substance: FENTANYL
  5. CLINDAMYCIN. [Concomitant]
     Active Substance: CLINDAMYCIN
  6. ZOCOR [Concomitant]
     Active Substance: SIMVASTATIN
  7. ASPIRIN                            /00002701/ [Concomitant]
     Active Substance: ASPIRIN
     Dosage: 81 MG, UNK
  8. TRAVATAN [Concomitant]
     Active Substance: TRAVOPROST
     Route: 031

REACTIONS (3)
  - Embolic cerebral infarction [Recovering/Resolving]
  - Hypoaesthesia [Recovering/Resolving]
  - Visual impairment [Recovering/Resolving]

NARRATIVE: CASE EVENT DATE: 20170914
